FAERS Safety Report 11757044 (Version 2)
Quarter: 2015Q4

REPORT INFORMATION
  Report Type: Spontaneous
  Country: IN (occurrence: IN)
  Receive Date: 20151120
  Receipt Date: 20151123
  Transmission Date: 20160304
  Serious: Yes (Death)
  Sender: FDA-Public Use
  Company Number: IN-009507513-1511IND010165

PATIENT
  Age: 70 Year
  Sex: Female
  Weight: 55 kg

DRUGS (1)
  1. JANUMET [Suspect]
     Active Substance: METFORMIN HYDROCHLORIDE\SITAGLIPTIN PHOSPHATE
     Indication: DIABETES MELLITUS
     Dosage: 2 TABLETS/DAY
     Route: 048
     Dates: end: 20151006

REACTIONS (2)
  - Cerebral artery occlusion [Fatal]
  - Hypertension [Fatal]

NARRATIVE: CASE EVENT DATE: 20151006
